FAERS Safety Report 16741007 (Version 3)
Quarter: 2019Q4

REPORT INFORMATION
  Report Type: Report from Study
  Country: US (occurrence: US)
  Receive Date: 20190826
  Receipt Date: 20191107
  Transmission Date: 20200122
  Serious: Yes (Hospitalization, Other)
  Sender: FDA-Public Use
  Company Number: US-JNJFOC-20190829499

PATIENT
  Age: 75 Year
  Sex: Female

DRUGS (11)
  1. MVI                                /01825701/ [Concomitant]
     Active Substance: VITAMINS
  2. IMBRUVICA [Suspect]
     Active Substance: IBRUTINIB
     Indication: CHRONIC LYMPHOCYTIC LEUKAEMIA
     Route: 048
     Dates: start: 20190821
  3. IMBRUVICA [Suspect]
     Active Substance: IBRUTINIB
     Dosage: 280 UNK, UNK
     Route: 048
     Dates: start: 20190621, end: 20190816
  4. ALLOPURINOL. [Concomitant]
     Active Substance: ALLOPURINOL
  5. IMBRUVICA [Suspect]
     Active Substance: IBRUTINIB
     Indication: LYMPHOCYTIC LEUKAEMIA
     Dosage: 280 MG, QD
     Route: 048
     Dates: start: 20190618
  6. LOSARTAN. [Concomitant]
     Active Substance: LOSARTAN
  7. SIMVASTATIN. [Concomitant]
     Active Substance: SIMVASTATIN
  8. ANASTROZOLE. [Concomitant]
     Active Substance: ANASTROZOLE
  9. EZETIMIBE. [Concomitant]
     Active Substance: EZETIMIBE
  10. PREDNISOLONE. [Concomitant]
     Active Substance: PREDNISOLONE
     Route: 047
  11. MULTIVITAMINS                      /00116001/ [Concomitant]
     Active Substance: VITAMINS

REACTIONS (2)
  - Hepatic failure [Not Recovered/Not Resolved]
  - Hepatic enzyme increased [Not Recovered/Not Resolved]

NARRATIVE: CASE EVENT DATE: 20190813
